FAERS Safety Report 5078436-8 (Version None)
Quarter: 2006Q3

REPORT INFORMATION
  Report Type: 
  Country: None (occurrence: None)
  Receive Date: 20060811
  Receipt Date: 20060712
  Transmission Date: 20061208
  Serious: Yes (Hospitalization, Other)
  Sender: FDA-Public Use
  Company Number: 2006GB01203

PATIENT
  Age: 28292 Day
  Sex: Male

DRUGS (1)
  1. CASODEX [Suspect]
     Route: 048
     Dates: end: 20060713

REACTIONS (1)
  - SUPRAVENTRICULAR TACHYCARDIA [None]
